FAERS Safety Report 5578452-3 (Version None)
Quarter: 2007Q4

REPORT INFORMATION
  Report Type: 
  Country: None (occurrence: None)
  Receive Date: 20071231
  Receipt Date: 20071219
  Transmission Date: 20080405
  Serious: Yes (Other)
  Sender: FDA-Public Use
  Company Number: US-PFIZER INC-2007107842

PATIENT
  Sex: Female

DRUGS (20)
  1. LIPITOR [Suspect]
     Indication: BLOOD CHOLESTEROL INCREASED
     Dates: start: 20070101, end: 20070101
  2. NEURONTIN [Suspect]
     Indication: BONE DENSITY DECREASED
  3. NEURONTIN [Suspect]
     Indication: ARTHRITIS
  4. GABAPENTIN [Suspect]
     Indication: BONE DENSITY DECREASED
  5. GABAPENTIN [Suspect]
     Indication: ARTHRITIS
  6. ZETIA [Suspect]
     Dates: start: 20070101, end: 20070101
  7. TRICOR [Suspect]
     Indication: BLOOD TRIGLYCERIDES INCREASED
  8. TOPAMAX [Suspect]
     Indication: POST-TRAUMATIC STRESS DISORDER
  9. TOPAMAX [Suspect]
     Indication: BIPOLAR DISORDER
  10. ZOCOR [Concomitant]
     Dates: start: 20070101, end: 20070101
  11. DITROPAN [Concomitant]
  12. BENTYL [Concomitant]
  13. ORTHO EVRA [Concomitant]
  14. RANITIDINE HCL [Concomitant]
  15. ALLEGRA [Concomitant]
  16. LORAZEPAM [Concomitant]
  17. NASACORT AQ [Concomitant]
  18. TRAZODONE HCL [Concomitant]
  19. PRILOSEC [Concomitant]
  20. TYLENOL [Concomitant]

REACTIONS (27)
  - ADVERSE EVENT [None]
  - ANOREXIA [None]
  - ANXIETY DISORDER [None]
  - ASTHENIA [None]
  - BIPOLAR DISORDER [None]
  - BLOOD CHOLESTEROL INCREASED [None]
  - BLOOD TRIGLYCERIDES INCREASED [None]
  - CRYING [None]
  - DIARRHOEA [None]
  - DISTURBANCE IN ATTENTION [None]
  - DIVERTICULITIS [None]
  - DIZZINESS [None]
  - FIBROMYALGIA [None]
  - HEADACHE [None]
  - HYPERHIDROSIS [None]
  - IRRITABLE BOWEL SYNDROME [None]
  - MEMORY IMPAIRMENT [None]
  - MYALGIA [None]
  - NAUSEA [None]
  - NERVOUSNESS [None]
  - PAIN [None]
  - PHARYNGOLARYNGEAL PAIN [None]
  - POLYPECTOMY [None]
  - POST-TRAUMATIC STRESS DISORDER [None]
  - STOMACH DISCOMFORT [None]
  - STRESS [None]
  - WEIGHT DECREASED [None]
